FAERS Safety Report 6383304 (Version 4)
Quarter: 2016Q2

REPORT INFORMATION
  Report Type: Spontaneous
  Country: GB (occurrence: GB)
  Receive Date: 20070815
  Receipt Date: 20160622
  Transmission Date: 20160815
  Serious: Yes (Other)
  Sender: FDA-Public Use
  Company Number: PHFR2007GB02396

PATIENT
  Age: 84 Year
  Sex: Male

DRUGS (2)
  1. FAMCICLOVIR. [Suspect]
     Active Substance: FAMCICLOVIR
     Dosage: SINGLE DOSE
     Route: 048
  2. AZATHIOPRINE. [Concomitant]
     Active Substance: AZATHIOPRINE
     Dosage: UNK
     Route: 048

REACTIONS (3)
  - Restlessness [Recovered/Resolved]
  - Confusional state [Recovered/Resolved]
  - Petit mal epilepsy [Recovered/Resolved]

NARRATIVE: CASE EVENT DATE: 20070801
